FAERS Safety Report 6752757-2 (Version None)
Quarter: 2010Q2

REPORT INFORMATION
  Report Type: 
  Country: None (occurrence: None)
  Receive Date: 20100528
  Receipt Date: 20100518
  Transmission Date: 20101027
  Serious: Yes (Other)
  Sender: FDA-Public Use
  Company Number: 1000013054

PATIENT
  Age: 54 Year
  Sex: Female
  Weight: 65 kg

DRUGS (4)
  1. ESCITALOPRAM [Suspect]
     Indication: DEPRESSION
     Dosage: 20 MG (20 MG, 1 IN 1 D), ORAL
     Route: 048
     Dates: start: 20091228
  2. ABILIFY [Suspect]
     Indication: AFFECTIVE DISORDER
     Dosage: 15 MG (15 MG, 1 IN 1 D)
     Dates: start: 20100309
  3. XANAX [Concomitant]
  4. MOPRAL [Concomitant]

REACTIONS (7)
  - ARTHRALGIA [None]
  - DYSPHONIA [None]
  - DYSURIA [None]
  - ERYTHEMA [None]
  - HEADACHE [None]
  - MOUTH ULCERATION [None]
  - VASCULITIS [None]
